FAERS Safety Report 13265830 (Version 1)
Quarter: 2017Q1

REPORT INFORMATION
  Report Type: Spontaneous
  Country: US (occurrence: US)
  Receive Date: 20170223
  Receipt Date: 20170223
  Transmission Date: 20170428
  Serious: No
  Sender: FDA-Public Use
  Company Number: US-MYLANLABS-2016M1012899

PATIENT
  Age: 37 Year
  Sex: Female
  Weight: 60 kg

DRUGS (3)
  1. VANCOMYCIN [Suspect]
     Active Substance: VANCOMYCIN
     Indication: STAPHYLOCOCCAL INFECTION
     Dosage: UNK
     Dates: start: 20160214, end: 201603
  2. SODIUM [Suspect]
     Active Substance: SODIUM
     Indication: BLOOD SODIUM DECREASED
     Dosage: UNK
     Dates: start: 201602, end: 20160301
  3. MULTIVITAMIN                       /00097801/ [Concomitant]
     Active Substance: VITAMINS
     Indication: BLOOD IRON DECREASED
     Dosage: UNK, BID
     Dates: start: 20160125

REACTIONS (2)
  - Blood sodium decreased [Recovered/Resolved]
  - Rash pruritic [Recovered/Resolved]

NARRATIVE: CASE EVENT DATE: 201602
